FAERS Safety Report 9412473 (Version 2)
Quarter: 2013Q4

REPORT INFORMATION
  Report Type: Report from Study
  Country: ZA (occurrence: ZA)
  Receive Date: 20130722
  Receipt Date: 20131007
  Transmission Date: 20140711
  Serious: Yes (Hospitalization, Other)
  Sender: FDA-Public Use
  Company Number: ZA-BAYER-2013-078126

PATIENT
  Age: 37 Year
  Sex: Female

DRUGS (1)
  1. BETAFERON [Suspect]
     Indication: RELAPSING-REMITTING MULTIPLE SCLEROSIS
     Dosage: 8 MIU, QOD
     Route: 058
     Dates: start: 20091104

REACTIONS (10)
  - Multiple sclerosis relapse [Recovering/Resolving]
  - Sarcoidosis [None]
  - Speech disorder [Recovering/Resolving]
  - Optic neuritis [Recovering/Resolving]
  - Endometriosis [Not Recovered/Not Resolved]
  - Pain [Not Recovered/Not Resolved]
  - Discomfort [Not Recovered/Not Resolved]
  - Injection site erythema [Not Recovered/Not Resolved]
  - Depressed mood [None]
  - Affect lability [None]
